FAERS Safety Report 7654186-6 (Version None)
Quarter: 2011Q3

REPORT INFORMATION
  Report Type: 
  Country: None (occurrence: None)
  Receive Date: 20110803
  Receipt Date: 20110726
  Transmission Date: 20111222
  Serious: Yes (Hospitalization)
  Sender: FDA-Public Use
  Company Number: US-NOVOPROD-332629

PATIENT
  Age: 79 Year
  Sex: Male
  Weight: 81.633 kg

DRUGS (5)
  1. SYNTHROID [Concomitant]
     Indication: HYPERTHYROIDISM
     Dosage: UNK
  2. LEVEMIR [Suspect]
     Dosage: 15 U, QD
     Route: 058
     Dates: end: 20110715
  3. MELOXICAM [Concomitant]
     Indication: ARTHRITIS
     Dosage: UNK
  4. LEVEMIR [Suspect]
     Indication: TYPE 2 DIABETES MELLITUS
     Dosage: 20 U, QD
     Route: 058
     Dates: start: 20110101
  5. LIPITOR [Concomitant]
     Indication: BLOOD CHOLESTEROL INCREASED
     Dosage: UNK

REACTIONS (1)
  - BIPOLAR I DISORDER [None]
